FAERS Safety Report 12784694 (Version 2)
Quarter: 2016Q4

REPORT INFORMATION
  Report Type: Spontaneous
  Country: TW (occurrence: TW)
  Receive Date: 20160927
  Receipt Date: 20161209
  Transmission Date: 20170207
  Serious: Yes (Death, Hospitalization)
  Sender: FDA-Public Use
  Company Number: PHHY2016TW131525

PATIENT
  Age: 75 Year
  Sex: Female

DRUGS (3)
  1. OCTREOTIDE. [Suspect]
     Active Substance: OCTREOTIDE
     Indication: MALIGNANT BOWEL OBSTRUCTION
     Dosage: UNK UNK, TID
     Route: 058
  2. LEUCOVORIN. [Concomitant]
     Active Substance: LEUCOVORIN
     Indication: GASTRIC CANCER
     Dosage: 300 MG/M2, WEEKLY
     Route: 065
  3. 5-FU [Concomitant]
     Active Substance: FLUOROURACIL
     Indication: GASTRIC CANCER
     Dosage: 2000 TO 2600 NG/M2, QW
     Route: 065

REACTIONS (2)
  - Product use issue [Unknown]
  - Septic shock [Fatal]
